FAERS Safety Report 6308661-7 (Version None)
Quarter: 2009Q3

REPORT INFORMATION
  Report Type: 
  Country: None (occurrence: None)
  Receive Date: 20090813
  Receipt Date: 20090806
  Transmission Date: 20100115
  Serious: Yes (Other)
  Sender: FDA-Public Use
  Company Number: US-ROXANE LABORATORIES, INC.-2009-RO-00577RO

PATIENT
  Sex: Female
  Weight: 111 kg

DRUGS (20)
  1. LITHIUM CARBONATE [Suspect]
     Indication: MOOD ALTERED
     Dosage: 600 MG
     Route: 048
     Dates: start: 20040101
  2. PRIMIDONE [Suspect]
     Indication: EPILEPSY
     Route: 048
     Dates: start: 20010101
  3. PRIMIDONE [Suspect]
     Dates: start: 20070710
  4. METFORMIN HCL [Suspect]
     Indication: BLOOD TESTOSTERONE ABNORMAL
     Dosage: 1000 MG
     Route: 048
     Dates: start: 20040101
  5. METFORMIN HCL [Suspect]
     Route: 048
     Dates: start: 20010101
  6. METFORMIN HCL [Suspect]
     Dosage: 600 MG
     Route: 048
     Dates: start: 20040101
  7. WELLBUTRIN XL [Suspect]
     Indication: DEPRESSION
     Dosage: 150 MG
     Route: 048
     Dates: start: 20040101
  8. ESTRADIOL [Suspect]
     Indication: HYSTERECTOMY
     Dosage: 4 MG
     Route: 048
     Dates: start: 20060101
  9. DICYCLOMINE [Suspect]
     Indication: DYSPEPSIA
     Dosage: 40 MG
     Route: 048
     Dates: start: 20070101
  10. RELPAX [Suspect]
     Indication: MIGRAINE
     Route: 048
     Dates: start: 20030101
  11. PREVACID [Suspect]
     Indication: DYSPEPSIA
     Dosage: 60 MG
     Route: 048
     Dates: start: 20030101
  12. BUPROPION [Suspect]
     Indication: SEASONAL AFFECTIVE DISORDER
     Dosage: 75 MG
     Route: 048
     Dates: start: 20010101
  13. BUPROPION [Suspect]
     Route: 061
     Dates: start: 20070101
  14. BUPROPION [Suspect]
     Route: 061
     Dates: start: 20080101
  15. CLOTRIMAZOLE [Suspect]
     Indication: FUNGAL INFECTION
     Route: 061
     Dates: start: 20070101
  16. FUNGOID TINC [Suspect]
     Indication: ONYCHOMYCOSIS
     Route: 061
     Dates: start: 20080101
  17. ADVAIR HFA [Suspect]
     Indication: BRONCHITIS
     Route: 055
     Dates: start: 20090201, end: 20090531
  18. ADVAIR HFA [Suspect]
     Indication: ASTHMA
  19. XOPENEX [Suspect]
     Indication: ASTHMA
     Route: 055
     Dates: start: 20080601
  20. CARAFATE [Suspect]
     Indication: DYSPEPSIA
     Dosage: 4 G
     Route: 048
     Dates: start: 20080101

REACTIONS (4)
  - BLINDNESS TRANSIENT [None]
  - DEAFNESS TRANSITORY [None]
  - HYPERACUSIS [None]
  - SWELLING FACE [None]
